FAERS Safety Report 6385828-3 (Version None)
Quarter: 2009Q3

REPORT INFORMATION
  Report Type: 
  Country: None (occurrence: None)
  Receive Date: 20090929
  Receipt Date: 20090626
  Transmission Date: 20100115
  Serious: Yes (Life-Threatening, Hospitalization)
  Sender: FDA-Public Use
  Company Number: LMI-2009-00164

PATIENT
  Age: 79 Year
  Sex: Male
  Weight: 93.441 kg

DRUGS (15)
  1. DEFINITY [Suspect]
     Indication: CORONARY ARTERY DISEASE
     Dosage: 1 VIAL TO 10 ML WITH 0.9 NORMAL SALINE (2 IN 1 D), INTRAVENOUS
     Route: 042
     Dates: start: 20090625, end: 20090625
  2. DEFINITY [Suspect]
     Indication: DYSPNOEA EXERTIONAL
     Dosage: 1 VIAL TO 10 ML WITH 0.9 NORMAL SALINE (2 IN 1 D), INTRAVENOUS
     Route: 042
     Dates: start: 20090625, end: 20090625
  3. DEFINITY [Suspect]
     Indication: STRESS ECHOCARDIOGRAM
     Dosage: 1 VIAL TO 10 ML WITH 0.9 NORMAL SALINE (2 IN 1 D), INTRAVENOUS
     Route: 042
     Dates: start: 20090625, end: 20090625
  4. METFORMIN HCL [Concomitant]
  5. METOPROLOL (METOPROLOL) [Concomitant]
  6. ASPIRIN [Concomitant]
  7. TRICOR (ADENOSINE) [Concomitant]
  8. DIAZEPAM [Concomitant]
  9. LASIX [Concomitant]
  10. COUMADIN [Concomitant]
  11. XOPENEX [Concomitant]
  12. OMEGA 3 (EICOSAPENTAENOIC ACID, DOCOSAHEXANOIC ACID) [Concomitant]
  13. QUINAPRIL HCL [Concomitant]
  14. VYTORIN [Concomitant]
  15. MULTIVITAMIN (ERGOCALCIFEROL, ASCORBIC ACID, PYRIDOXINE HYDROCHLORIDE, [Concomitant]

REACTIONS (4)
  - BLOOD PRESSURE INCREASED [None]
  - DYSPNOEA [None]
  - FATIGUE [None]
  - MUSCULOSKELETAL DISCOMFORT [None]
